FAERS Safety Report 10149966 (Version 1)
Quarter: 2014Q2

REPORT INFORMATION
  Report Type: Spontaneous
  Country: US (occurrence: None)
  Receive Date: 20140501
  Receipt Date: 20140501
  Transmission Date: 20141212
  Serious: Yes (Death)
  Sender: FDA-Public Use
  Company Number: None

PATIENT
  Age: 75 Year
  Sex: Male

DRUGS (2)
  1. SAMSCA [Suspect]
     Indication: HYPONATRAEMIA
     Route: 048
     Dates: start: 20120705, end: 20140425
  2. ZEMPLAR [Suspect]
     Indication: HYPERPARATHYROIDISM
     Dosage: 1 MCG 3 TIMES A WEEK PO
     Route: 048
     Dates: start: 20130514, end: 20140425

REACTIONS (1)
  - Death [None]
